FAERS Safety Report 24442249 (Version 2)
Quarter: 2024Q4

REPORT INFORMATION
  Report Type: Report from Study
  Country: CL (occurrence: CL)
  Receive Date: 20241016
  Receipt Date: 20241017
  Transmission Date: 20250114
  Serious: No
  Sender: ROCHE
  Company Number: CL-ROCHE-3531918

PATIENT
  Age: 62 Year
  Sex: Male
  Weight: 76.0 kg

DRUGS (1)
  1. HEMLIBRA [Suspect]
     Active Substance: EMICIZUMAB-KXWH
     Indication: Haemophilia
     Dosage: 105MG/0.7ML
     Route: 065
     Dates: start: 202312

REACTIONS (1)
  - X-ray limb abnormal [Not Recovered/Not Resolved]

NARRATIVE: CASE EVENT DATE: 20240301
